FAERS Safety Report 4602784-6 (Version None)
Quarter: 2005Q1

REPORT INFORMATION
  Report Type: 
  Country: None (occurrence: None)
  Receive Date: 20050307
  Receipt Date: 20050223
  Transmission Date: 20050727
  Serious: Yes (Death)
  Sender: FDA-Public Use
  Company Number: 2005036939

PATIENT
  Age: 6 Year
  Sex: Male

DRUGS (1)
  1. BENADRYL [Suspect]
     Indication: INTENTIONAL MISUSE
     Dosage: LETHAL DOSE ORAL
     Route: 048
     Dates: start: 20050222, end: 20050222

REACTIONS (3)
  - INJURY ASPHYXIATION [None]
  - INTENTIONAL MISUSE [None]
  - VICTIM OF CRIME [None]
